FAERS Safety Report 11894012 (Version 2)
Quarter: 2016Q1

REPORT INFORMATION
  Report Type: Spontaneous
  Country: US (occurrence: US)
  Receive Date: 20160107
  Receipt Date: 20160121
  Transmission Date: 20160526
  Serious: Yes (Other)
  Sender: FDA-Public Use
  Company Number: US-BEH-2015057351

PATIENT
  Sex: Female
  Weight: 87 kg

DRUGS (11)
  1. HIZENTRA [Suspect]
     Active Substance: HUMAN IMMUNOGLOBULIN G
     Indication: HYPOGAMMAGLOBULINAEMIA
     Route: 058
     Dates: start: 20130306
  2. LIDOCAINE. [Concomitant]
     Active Substance: LIDOCAINE
  3. HIZENTRA [Suspect]
     Active Substance: HUMAN IMMUNOGLOBULIN G
     Route: 058
     Dates: start: 20130306
  4. MIRAPEX [Concomitant]
     Active Substance: PRAMIPEXOLE DIHYDROCHLORIDE
  5. COUMADIN [Concomitant]
     Active Substance: WARFARIN SODIUM
  6. INSULIN [Concomitant]
     Active Substance: INSULIN NOS
  7. TETRACYCLINE [Concomitant]
     Active Substance: TETRACYCLINE
  8. LEXAPRO [Concomitant]
     Active Substance: ESCITALOPRAM OXALATE
  9. EPIPEN [Concomitant]
     Active Substance: EPINEPHRINE
  10. MUCINEX [Concomitant]
     Active Substance: GUAIFENESIN
  11. LAMICTAL [Concomitant]
     Active Substance: LAMOTRIGINE

REACTIONS (1)
  - Lung infection [Recovered/Resolved]
